FAERS Safety Report 7313175-1 (Version None)
Quarter: 2011Q1

REPORT INFORMATION
  Report Type: 
  Country: None (occurrence: None)
  Receive Date: 20110225
  Receipt Date: 20110222
  Transmission Date: 20110831
  Serious: No
  Sender: FDA-Public Use
  Company Number: US-TEVA-268308USA

PATIENT
  Age: 72 Year
  Sex: Female

DRUGS (2)
  1. BREVA [Concomitant]
     Indication: ASTHMA
  2. ALBUTEROL SULFATE AUTOHALER [Suspect]
     Indication: ASTHMA
     Route: 055
     Dates: start: 20080101

REACTIONS (2)
  - GAIT DISTURBANCE [None]
  - BALANCE DISORDER [None]
